FAERS Safety Report 5787960-1 (Version None)
Quarter: 2008Q2

REPORT INFORMATION
  Report Type: 
  Country: None (occurrence: None)
  Receive Date: 20080625
  Receipt Date: 20080619
  Transmission Date: 20081010
  Serious: Yes (Other)
  Sender: FDA-Public Use
  Company Number: D0056524A

PATIENT
  Age: 3 Year
  Sex: Male

DRUGS (9)
  1. VIANI [Suspect]
     Dosage: 1PUFF TWICE PER DAY
     Route: 055
     Dates: start: 20080304, end: 20080516
  2. ALBUTEROL [Suspect]
     Route: 055
     Dates: start: 20070901, end: 20080301
  3. SALBUHEXAL [Suspect]
     Route: 055
     Dates: start: 20071101
  4. SINGULAIR [Suspect]
     Dosage: 4MG AT NIGHT
     Route: 048
     Dates: start: 20080301, end: 20080301
  5. BEPANTHEN [Suspect]
     Route: 055
     Dates: start: 20080201, end: 20080301
  6. KORTISON [Suspect]
     Route: 055
     Dates: end: 20080301
  7. BUDES [Suspect]
     Route: 055
     Dates: start: 20071101, end: 20080201
  8. ANTIBIOTIC [Concomitant]
     Route: 065
     Dates: start: 20070101, end: 20070101
  9. ANTI-ASTHMATIC DRUGS [Concomitant]
     Route: 055
     Dates: start: 20070901, end: 20071101

REACTIONS (14)
  - AGGRESSION [None]
  - BRONCHOSPASM [None]
  - COUGH [None]
  - DIARRHOEA [None]
  - DRUG INEFFECTIVE [None]
  - EATING DISORDER [None]
  - EXPIRED DRUG ADMINISTERED [None]
  - FORMICATION [None]
  - GASTROENTERITIS VIRAL [None]
  - GASTROINTESTINAL PAIN [None]
  - HEADACHE [None]
  - PERSONALITY CHANGE [None]
  - PYREXIA [None]
  - WHEEZING [None]
